FAERS Safety Report 18675176 (Version 1)
Quarter: 2020Q4

REPORT INFORMATION
  Report Type: Spontaneous
  Country: ES (occurrence: ES)
  Receive Date: 20201229
  Receipt Date: 20201229
  Transmission Date: 20210114
  Serious: Yes (Death)
  Sender: FDA-Public Use
  Company Number: NVSC2020ES343692

PATIENT
  Age: 59 Year
  Sex: Female

DRUGS (2)
  1. METFORMINA [Concomitant]
     Active Substance: METFORMIN HYDROCHLORIDE
     Indication: PRODUCT USED FOR UNKNOWN INDICATION
     Dosage: UNK (850 MG C/12H (SE DESCONOCE FECHA DE INICIO))
     Route: 048
     Dates: start: 20191231
  2. PARACETAMOL [Suspect]
     Active Substance: ACETAMINOPHEN
     Indication: PYREXIA
     Dosage: 1 G, Q6H (1000 MG C/6H)
     Route: 048
     Dates: start: 20200724, end: 20200727

REACTIONS (1)
  - Hepatitis toxic [Fatal]

NARRATIVE: CASE EVENT DATE: 20200727
